FAERS Safety Report 16996102 (Version 1)
Quarter: 2019Q4

REPORT INFORMATION
  Report Type: Spontaneous
  Country: CN (occurrence: CN)
  Receive Date: 20191105
  Receipt Date: 20191105
  Transmission Date: 20200122
  Serious: Yes (Other)
  Sender: FDA-Public Use
  Company Number: CN-PFIZER INC-2019470130

PATIENT
  Age: 49 Year
  Sex: Female

DRUGS (1)
  1. CELECOXIB. [Suspect]
     Active Substance: CELECOXIB
     Indication: ARTHRALGIA
     Dosage: 0.2 G, 2X/DAY
     Route: 048
     Dates: start: 20190930, end: 20191003

REACTIONS (7)
  - Pruritus [Recovering/Resolving]
  - Blood pressure decreased [Recovering/Resolving]
  - Dizziness [Unknown]
  - Anaphylactic shock [Unknown]
  - Rash [Recovering/Resolving]
  - Lip swelling [Unknown]
  - Lip erythema [Unknown]

NARRATIVE: CASE EVENT DATE: 2019
